FAERS Safety Report 7944484-0 (Version None)
Quarter: 2011Q4

REPORT INFORMATION
  Report Type: 
  Country: None (occurrence: None)
  Receive Date: 20111129
  Receipt Date: 20111116
  Transmission Date: 20120403
  Serious: Yes (Other)
  Sender: FDA-Public Use
  Company Number: PL-RANBAXY-2011RR-46189

PATIENT
  Age: 12 Year
  Sex: Female

DRUGS (6)
  1. CLARITHROMYCIN [Suspect]
     Indication: BRONCHITIS
     Dosage: UNK
     Route: 065
  2. CYCLOSPORINE [Suspect]
     Route: 065
  3. CYCLOSPORINE [Suspect]
     Indication: NEPHROTIC SYNDROME
     Dosage: UNK
     Route: 065
  4. PREDNISONE TAB [Concomitant]
     Indication: NEPHROTIC SYNDROME
     Dosage: UNK
     Route: 065
  5. AZATHIOPRINE [Concomitant]
     Indication: NEPHROTIC SYNDROME
     Dosage: UNK
     Route: 065
  6. AMOXICILLIN AND CLAVULANATE POTASSIUM [Concomitant]
     Indication: RESPIRATORY TRACT INFECTION
     Dosage: UNK
     Route: 065

REACTIONS (4)
  - NEPHROTIC SYNDROME [None]
  - RESPIRATORY TRACT INFECTION [None]
  - DRUG INTERACTION [None]
  - RENAL FAILURE ACUTE [None]
